FAERS Safety Report 23244315 (Version 1)
Quarter: 2023Q4

REPORT INFORMATION
  Report Type: Spontaneous
  Country: CA (occurrence: CA)
  Receive Date: 20231130
  Receipt Date: 20231130
  Transmission Date: 20240110
  Serious: Yes (Death)
  Sender: FDA-Public Use
  Company Number: CA-BAYER-2023A170495

PATIENT
  Sex: Male

DRUGS (1)
  1. EYLEA [Suspect]
     Active Substance: AFLIBERCEPT
     Indication: Age-related macular degeneration
     Dosage: SOLUTION FOR INJECTION IN PRE-FILLED SYRINGE, 40 MG/ML
     Dates: start: 20220125, end: 20221104

REACTIONS (1)
  - Death [Fatal]

NARRATIVE: CASE EVENT DATE: 20230224
